FAERS Safety Report 12658730 (Version 1)
Quarter: 2016Q3

REPORT INFORMATION
  Report Type: Spontaneous
  Country: US (occurrence: US)
  Receive Date: 20160817
  Receipt Date: 20160817
  Transmission Date: 20161109
  Serious: Yes (Death)
  Sender: FDA-Public Use
  Company Number: PHEH2016US020646

PATIENT
  Sex: Female

DRUGS (2)
  1. TYKERB [Suspect]
     Active Substance: LAPATINIB DITOSYLATE
     Indication: BREAST CANCER FEMALE
     Dosage: 4 DF, QD
     Route: 048
     Dates: start: 20160105
  2. TYKERB [Suspect]
     Active Substance: LAPATINIB DITOSYLATE
     Indication: METASTASES TO LUNG

REACTIONS (2)
  - Breast cancer female [Fatal]
  - Malignant neoplasm progression [Fatal]
